FAERS Safety Report 16575010 (Version 1)
Quarter: 2019Q3

REPORT INFORMATION
  Report Type: Spontaneous
  Country: GB (occurrence: GB)
  Receive Date: 20190715
  Receipt Date: 20190715
  Transmission Date: 20191004
  Serious: Yes (Other)
  Sender: FDA-Public Use
  Company Number: GB-CELLTRION INC.-2019GB022659

PATIENT

DRUGS (2)
  1. RITUXIMAB (UNKNOWN) [Suspect]
     Active Substance: RITUXIMAB
     Indication: HAIRY CELL LEUKAEMIA
     Dosage: UNK
     Route: 065
  2. VEMURAFENIB. [Concomitant]
     Active Substance: VEMURAFENIB
     Indication: HAIRY CELL LEUKAEMIA
     Dosage: UNK
     Route: 065

REACTIONS (7)
  - Platelet count decreased [Unknown]
  - Thrombocytopenia [Unknown]
  - Bone marrow infiltration [Unknown]
  - Hairy cell leukaemia [Unknown]
  - Anaemia [Unknown]
  - Malaise [Unknown]
  - Product use in unapproved indication [Unknown]
